FAERS Safety Report 8809197 (Version 1)
Quarter: 2012Q4

REPORT INFORMATION
  Report Type: Spontaneous
  Country: US (occurrence: None)
  Receive Date: 20120920
  Receipt Date: 20120920
  Transmission Date: 20130627
  Serious: Yes (Hospitalization)
  Sender: FDA-Public Use
  Company Number: 2012P1054688

PATIENT
  Age: 51 Year
  Sex: Female
  Weight: 79.38 kg

DRUGS (12)
  1. FENTANYL PATCH 25 MCG/HR (NO PREF. NAME) [Suspect]
     Indication: LUPUS SYNDROME
     Dosage: 1 PATCH;Q72H;TDER
     Route: 062
     Dates: start: 20120810, end: 201208
  2. FENTANYL PATCH 25 MCG/HR (NO PREF. NAME) [Suspect]
     Indication: VASCULITIS
     Dosage: 1 PATCH;Q72H;TDER
     Route: 062
     Dates: start: 20120810, end: 201208
  3. FENTANYL PATCH [Suspect]
     Indication: LUPUS SYNDROME
     Dosage: 1 PATCH;Q72H;TDER
     Route: 062
     Dates: start: 201208, end: 20120904
  4. FENTANYL PATCH [Suspect]
     Indication: NERVE PAIN
     Dosage: 1 PATCH;Q72H;TDER
     Route: 062
     Dates: start: 201208, end: 20120904
  5. FENTANYL PATCH [Suspect]
     Indication: MUSCLE PAIN
     Dosage: 1 PATCH;Q72H;TDER
     Route: 062
     Dates: start: 201208, end: 20120904
  6. FENTANYL PATCH [Suspect]
     Indication: LUPUS SYNDROME
     Dosage: 1 PATCH;Q48H;TDER
     Route: 062
     Dates: start: 20120905, end: 20120907
  7. FENTANYL PATCH [Suspect]
     Indication: NERVE PAIN
     Dosage: 1 PATCH;Q48H;TDER
     Route: 062
     Dates: start: 20120905, end: 20120907
  8. FENTANYL PATCH [Suspect]
     Indication: MUSCLE PAIN
     Dosage: 1 PATCH;Q48H;TDER
     Route: 062
     Dates: start: 20120905, end: 20120907
  9. PREDNISONE [Concomitant]
  10. METHOTREXATE [Concomitant]
  11. IMITREX [Concomitant]
  12. DILAUDID [Concomitant]

REACTIONS (4)
  - Product adhesion issue [None]
  - Pyrexia [None]
  - Initial insomnia [None]
  - Application site erythema [None]
